FAERS Safety Report 5210573-7 (Version None)
Quarter: 2007Q1

REPORT INFORMATION
  Report Type: 
  Country: None (occurrence: None)
  Receive Date: 20070117
  Receipt Date: 20070110
  Transmission Date: 20070707
  Serious: Yes (Other)
  Sender: FDA-Public Use
  Company Number: 2006AP05226

PATIENT
  Age: 21020 Day
  Sex: Male

DRUGS (2)
  1. FOSCAVIR [Suspect]
     Indication: CYTOMEGALOVIRUS CHORIORETINITIS
     Route: 041
     Dates: start: 20061020
  2. DENOSINE [Concomitant]
     Indication: CYTOMEGALOVIRUS ANTIGEN

REACTIONS (1)
  - BRADYCARDIA [None]
